FAERS Safety Report 5758353-8 (Version None)
Quarter: 2008Q2

REPORT INFORMATION
  Report Type: 
  Country: None (occurrence: None)
  Receive Date: 20080604
  Receipt Date: 20080529
  Transmission Date: 20081010
  Serious: Yes (Other)
  Sender: FDA-Public Use
  Company Number: US-ASTRAZENECA-2008UW10886

PATIENT
  Age: 2 Year
  Sex: Female

DRUGS (3)
  1. PULMICORT RESPULES [Suspect]
     Indication: ASTHMA
     Route: 055
     Dates: start: 20071201
  2. PULMICORT RESPULES [Suspect]
     Route: 055
     Dates: start: 20060101, end: 20071201
  3. XOPENEX [Concomitant]

REACTIONS (1)
  - DENTAL CARIES [None]
